FAERS Safety Report 13608811 (Version 1)
Quarter: 2017Q2

REPORT INFORMATION
  Report Type: Spontaneous
  Country: JP (occurrence: JP)
  Receive Date: 20170602
  Receipt Date: 20170602
  Transmission Date: 20170830
  Serious: Yes (Hospitalization, Other)
  Sender: FDA-Public Use
  Company Number: JP-JNJFOC-20170527314

PATIENT
  Age: 75 Year
  Sex: Male
  Weight: 82 kg

DRUGS (17)
  1. SAMSCA [Suspect]
     Active Substance: TOLVAPTAN
     Indication: FLUID RETENTION
     Dosage: IN THE MORNING
     Route: 048
     Dates: start: 20150813, end: 20150907
  2. NITRAZEPAM [Concomitant]
     Active Substance: NITRAZEPAM
     Dosage: 25 PERCENT
     Route: 048
  3. LIMAPROST ALFADEX [Concomitant]
     Active Substance: LIMAPROST
     Dosage: 25 PERCENT
     Route: 048
  4. URSODEOXYCHOLIC ACID [Concomitant]
     Active Substance: URSODIOL
     Dosage: 25 PERCENT
     Route: 048
  5. ZOLPIDEM TARTRATE. [Concomitant]
     Active Substance: ZOLPIDEM TARTRATE
     Dosage: 25 PERCENT
     Route: 048
  6. DANTRIUM [Concomitant]
     Active Substance: DANTROLENE SODIUM
     Dosage: 25 PERCENT
     Route: 048
  7. TRAMCET [Suspect]
     Active Substance: ACETAMINOPHEN\TRAMADOL
     Indication: PRODUCT USED FOR UNKNOWN INDICATION
     Route: 048
     Dates: end: 20150828
  8. NORVASC [Concomitant]
     Active Substance: AMLODIPINE BESYLATE
     Route: 048
  9. NAFTOPIDIL [Concomitant]
     Active Substance: NAFTOPIDIL
     Dosage: ORODISPERSIBLE TABLET
     Route: 048
  10. BACTRAMIN [Concomitant]
     Active Substance: SULFAMETHOXAZOLE\TRIMETHOPRIM
     Indication: PROPHYLAXIS
     Route: 048
     Dates: start: 20150905
  11. JANUVIA [Suspect]
     Active Substance: SITAGLIPTIN PHOSPHATE
     Indication: PRODUCT USED FOR UNKNOWN INDICATION
     Dosage: IN THE MORNING
     Route: 048
     Dates: end: 20150828
  12. LASIX [Concomitant]
     Active Substance: FUROSEMIDE
     Dosage: 25 PERCENT
     Route: 048
  13. LOXOPROFEN [Concomitant]
     Active Substance: LOXOPROFEN
     Indication: PYREXIA
     Route: 048
     Dates: start: 20150825, end: 20150825
  14. MAGMITT [Suspect]
     Active Substance: MAGNESIUM OXIDE
     Indication: PRODUCT USED FOR UNKNOWN INDICATION
     Dosage: IN THE MORNING
     Route: 048
  15. TADALAFIL [Concomitant]
     Active Substance: TADALAFIL
     Dosage: ZALUTIA
     Route: 048
  16. OMEPRAL [Concomitant]
     Active Substance: OMEPRAZOLE
     Indication: PROPHYLAXIS
     Route: 048
     Dates: start: 20150831, end: 20150904
  17. PATELL [Concomitant]
     Dosage: TAPE
     Route: 065

REACTIONS (9)
  - Blood lactate dehydrogenase increased [Recovering/Resolving]
  - Hyperbilirubinaemia [Recovering/Resolving]
  - Interstitial lung disease [Recovering/Resolving]
  - Hyperkalaemia [Not Recovered/Not Resolved]
  - Chronic kidney disease [Not Recovered/Not Resolved]
  - Pyrexia [Recovered/Resolved]
  - Constipation [Recovered/Resolved]
  - Diarrhoea [Recovered/Resolved]
  - Hyperglycaemia [Not Recovered/Not Resolved]

NARRATIVE: CASE EVENT DATE: 20150824
